FAERS Safety Report 5303311-0 (Version None)
Quarter: 2007Q2

REPORT INFORMATION
  Report Type: 
  Country: None (occurrence: None)
  Receive Date: 20070420
  Receipt Date: 20070416
  Transmission Date: 20071010
  Serious: Yes (Hospitalization)
  Sender: FDA-Public Use
  Company Number: JP-GLAXOSMITHKLINE-B0466358A

PATIENT
  Age: 1 Year
  Sex: Male
  Weight: 9.5 kg

DRUGS (10)
  1. ALKERAN [Suspect]
     Indication: STEM CELL TRANSPLANT
     Dosage: 31MG PER DAY
     Route: 042
     Dates: start: 20051019, end: 20051027
  2. THIOTEPA [Suspect]
     Indication: STEM CELL TRANSPLANT
     Dates: start: 20051019, end: 20051027
  3. GRAN [Concomitant]
     Dates: start: 20051030, end: 20051111
  4. PHENOBARBITAL TAB [Concomitant]
     Dosage: 30MG PER DAY
     Route: 048
     Dates: start: 20051014
  5. BAKTAR [Concomitant]
     Dosage: .8G PER DAY
     Route: 048
     Dates: start: 20051014, end: 20061030
  6. DIFLUCAN [Concomitant]
     Dosage: 90MG PER DAY
     Route: 048
     Dates: start: 20051014
  7. POLYMYXIN B SULFATE [Concomitant]
     Dosage: 75IU3 PER DAY
     Route: 048
     Dates: start: 20051014, end: 20051114
  8. URSO [Concomitant]
     Dosage: 25MG PER DAY
     Route: 048
     Dates: start: 20051021, end: 20051128
  9. ZOVIRAX [Concomitant]
     Route: 048
     Dates: start: 20051021
  10. PANSPORIN [Concomitant]
     Dates: start: 20051026, end: 20051031

REACTIONS (3)
  - BONE MARROW FAILURE [None]
  - FEBRILE NEUTROPENIA [None]
  - SEPSIS [None]
